FAERS Safety Report 9239838 (Version 2)
Quarter: 2013Q2

REPORT INFORMATION
  Report Type: Spontaneous
  Country: US (occurrence: US)
  Receive Date: 20130418
  Receipt Date: 20130604
  Transmission Date: 20140414
  Serious: No
  Sender: FDA-Public Use
  Company Number: US-009507513-1304USA009130

PATIENT
  Age: 32 Year
  Sex: Female
  Weight: 56.69 kg

DRUGS (2)
  1. CLARITIN LIQUIGELS [Suspect]
     Indication: NASAL CONGESTION
     Dosage: UNK, QD
     Route: 048
     Dates: start: 20130301, end: 20130315
  2. CLARITIN LIQUIGELS [Suspect]
     Indication: SNEEZING

REACTIONS (1)
  - Drug ineffective [Unknown]
